FAERS Safety Report 4837697-8 (Version None)
Quarter: 2005Q4

REPORT INFORMATION
  Report Type: 
  Country: None (occurrence: None)
  Receive Date: 20051128
  Receipt Date: 20051108
  Transmission Date: 20060501
  Serious: Yes (Hospitalization)
  Sender: FDA-Public Use
  Company Number: GB-MERCK-0511GBR00057

PATIENT
  Age: 58 Year
  Sex: Male

DRUGS (12)
  1. ZOCOR [Suspect]
     Route: 048
  2. AMIODARONE [Suspect]
     Indication: SUPRAVENTRICULAR TACHYCARDIA
     Route: 042
  3. AMIODARONE [Suspect]
     Route: 048
  4. AMIODARONE [Suspect]
     Route: 048
  5. AMIODARONE [Suspect]
     Route: 048
  6. CLARITHROMYCIN [Suspect]
     Indication: LOWER RESPIRATORY TRACT INFECTION
     Route: 048
  7. ASPIRIN [Concomitant]
     Route: 065
  8. AMLODIPINE MALEATE [Concomitant]
     Route: 065
  9. FERROUS SULFATE [Concomitant]
     Route: 065
  10. LANSOPRAZOLE [Concomitant]
     Route: 065
  11. ADENOSINE [Concomitant]
     Indication: SUPRAVENTRICULAR TACHYCARDIA
     Route: 042
  12. CEFTRIAXONE SODIUM [Concomitant]
     Indication: LOWER RESPIRATORY TRACT INFECTION
     Route: 042

REACTIONS (15)
  - ALANINE AMINOTRANSFERASE INCREASED [None]
  - ASPARTATE AMINOTRANSFERASE INCREASED [None]
  - ASTHENIA [None]
  - BLOOD CREATINE PHOSPHOKINASE INCREASED [None]
  - DRUG INTERACTION [None]
  - HYPOKALAEMIA [None]
  - HYPOKINESIA [None]
  - LIVER FUNCTION TEST ABNORMAL [None]
  - MYALGIA [None]
  - MYOSITIS [None]
  - PERICARDIAL EFFUSION [None]
  - PLEURAL EFFUSION [None]
  - PNEUMONIA [None]
  - PULMONARY EMBOLISM [None]
  - SUPRAVENTRICULAR TACHYCARDIA [None]
